FAERS Safety Report 9160983 (Version 2)
Quarter: 2013Q2

REPORT INFORMATION
  Report Type: Report from Study
  Country: CA (occurrence: CA)
  Receive Date: 20130313
  Receipt Date: 20130404
  Transmission Date: 20140414
  Serious: Yes (Hospitalization)
  Sender: FDA-Public Use
  Company Number: CA-ABBOTT-13P-028-1059280-00

PATIENT
  Sex: Female

DRUGS (2)
  1. HUMIRA [Suspect]
     Indication: CROHN^S DISEASE
     Route: 058
     Dates: start: 20100310, end: 20121206
  2. HUMIRA [Suspect]
     Route: 058
     Dates: start: 20121226

REACTIONS (3)
  - Device failure [Unknown]
  - Tibia fracture [Recovering/Resolving]
  - Fall [Recovering/Resolving]
